FAERS Safety Report 8247335-2 (Version None)
Quarter: 2012Q1

REPORT INFORMATION
  Report Type: 
  Country: None (occurrence: None)
  Receive Date: 20120330
  Receipt Date: 20120322
  Transmission Date: 20120608
  Serious: Yes (Other)
  Sender: FDA-Public Use
  Company Number: US-JNJFOC-20110804276

PATIENT
  Sex: Male

DRUGS (16)
  1. MS CONTIN [Concomitant]
     Route: 048
  2. PERCOCET [Concomitant]
     Route: 048
  3. SPIRIVA [Concomitant]
     Route: 065
  4. AMBIEN CR [Concomitant]
     Route: 048
  5. PREDNISONE TAB [Suspect]
     Indication: PRODUCT USED FOR UNKNOWN INDICATION
     Route: 048
  6. LEVAQUIN [Suspect]
     Indication: BACTERIAL INFECTION
     Route: 048
  7. XOPENEX [Concomitant]
     Route: 048
  8. VARENICLINE TARTRATE [Concomitant]
     Route: 048
  9. LEVAQUIN [Suspect]
     Indication: PRODUCT USED FOR UNKNOWN INDICATION
  10. ADVAIR DISKUS 100/50 [Suspect]
     Indication: DYSPNOEA
     Route: 065
  11. ALLEGRA [Concomitant]
     Route: 048
  12. SOMA [Concomitant]
     Route: 048
  13. DILAUDID [Concomitant]
     Route: 048
  14. CELEBREX [Concomitant]
     Route: 048
  15. LYRICA [Concomitant]
     Route: 048
  16. ZOLOFT [Concomitant]
     Route: 048

REACTIONS (2)
  - ROTATOR CUFF SYNDROME [None]
  - TENDON INJURY [None]
